FAERS Safety Report 6252600-4 (Version None)
Quarter: 2009Q3

REPORT INFORMATION
  Report Type: 
  Country: None (occurrence: None)
  Receive Date: 20090701
  Receipt Date: 20090623
  Transmission Date: 20100115
  Serious: Yes (Life-Threatening, Hospitalization)
  Sender: FDA-Public Use
  Company Number: BR-ROCHE-592251

PATIENT
  Sex: Female
  Weight: 44.2 kg

DRUGS (17)
  1. CAPECITABINE [Suspect]
     Indication: GASTRIC CANCER
     Dosage: GIVEN TWICE DAILY FOR 14 DAYS EVERY 3 WEEKS UNTIL DISEASE PROGRESSION.
     Route: 048
     Dates: start: 20080905, end: 20081020
  2. BLINDED BEVACIZUMAB [Suspect]
     Indication: GASTRIC CANCER
     Dosage: GIVEN ON DAY 1 OF CYCLE 1 UNTIL DISEASE PROGRESSION. DOSAGE FORM: INFUSION .
     Route: 042
     Dates: start: 20080905, end: 20081020
  3. CISPLATIN [Suspect]
     Indication: GASTRIC CANCER
     Dosage: GIVEN ON DAY 1 EVERY 3 WEEKS FOR 6 CYCLES. DOSAGE FORM: INFUSION.
     Route: 042
     Dates: start: 20080905, end: 20081020
  4. IMOSEC [Concomitant]
     Dates: start: 20081006, end: 20081020
  5. IMOSEC [Concomitant]
     Dates: start: 20081017
  6. ENALAPRIL [Concomitant]
     Dates: start: 20000630, end: 20090107
  7. OMEPRAZOL [Concomitant]
     Dates: start: 20080828
  8. NYSTATIN/TETRACLYCINE MOUTHWASH [Concomitant]
     Dosage: REPORTED AS: NYSTATINA AS MOUTH WASHING.
     Dates: start: 20081008, end: 20090107
  9. NYSTATIN/TETRACLYCINE MOUTHWASH [Concomitant]
     Dosage: UNIT: CUP.
     Dates: start: 20081017
  10. POTASSIUM CHLORIDE [Concomitant]
     Dates: start: 20081017
  11. CIPROFLOXACIN [Concomitant]
     Dates: start: 20081017, end: 20081022
  12. METOCLOPRAMIDE [Concomitant]
     Dates: start: 20081023
  13. CAPTOPRIL [Concomitant]
     Dates: start: 20081020, end: 20081020
  14. FENITOINA [Concomitant]
     Dates: start: 20081021, end: 20081022
  15. BICARBONATE [Concomitant]
     Dates: start: 20081017, end: 20081102
  16. ONDANSETRON [Concomitant]
     Dates: start: 20081019, end: 20081019
  17. OMEPRAZOLE [Concomitant]
     Dates: start: 20080828, end: 20090107

REACTIONS (3)
  - CEREBRAL HAEMORRHAGE [None]
  - DEHYDRATION [None]
  - LABORATORY TEST ABNORMAL [None]
